FAERS Safety Report 7813466-1 (Version None)
Quarter: 2011Q4

REPORT INFORMATION
  Report Type: 
  Country: None (occurrence: None)
  Receive Date: 20111014
  Receipt Date: 20111006
  Transmission Date: 20120403
  Serious: No
  Sender: FDA-Public Use
  Company Number: US-BIOGENIDEC-2011BI017760

PATIENT
  Age: 44 Year
  Sex: Female

DRUGS (3)
  1. AVONEX [Concomitant]
     Indication: MULTIPLE SCLEROSIS
     Route: 030
  2. TYSABRI [Suspect]
     Indication: MULTIPLE SCLEROSIS
     Route: 042
     Dates: start: 20110329
  3. OXYBUTYNIN [Concomitant]
     Indication: MICTURITION URGENCY

REACTIONS (9)
  - VISION BLURRED [None]
  - PAIN IN EXTREMITY [None]
  - DIPLOPIA [None]
  - ABDOMINAL PAIN [None]
  - MUSCULAR WEAKNESS [None]
  - POOR QUALITY SLEEP [None]
  - WEIGHT INCREASED [None]
  - HEADACHE [None]
  - ASTHENIA [None]
